FAERS Safety Report 9253788 (Version 1)
Quarter: 2013Q2

REPORT INFORMATION
  Report Type: Spontaneous
  Country: US (occurrence: US)
  Receive Date: 20130425
  Receipt Date: 20130425
  Transmission Date: 20140414
  Serious: No
  Sender: FDA-Public Use
  Company Number: US-PFIZER INC-2013127128

PATIENT
  Age: 67 Year
  Sex: Male

DRUGS (13)
  1. XALKORI [Suspect]
     Indication: LUNG CANCER METASTATIC
     Dosage: 250 MG, 2X/DAY
     Route: 048
     Dates: start: 201304
  2. ASPIRIN [Concomitant]
     Dosage: 81 MG, UNK
  3. ATIVAN [Concomitant]
     Dosage: 0.5 MG, UNK
  4. DEXAMETHASONE [Concomitant]
     Dosage: 4 MG, UNK
  5. FOLIC ACID [Concomitant]
     Dosage: 800 UG, UNK
  6. LISINOPRIL [Concomitant]
     Dosage: 2.5 MG, UNK
  7. METOCLOPRAMIDE [Concomitant]
     Dosage: 5 MG, UNK
  8. NEXIUM [Concomitant]
     Dosage: 40 MG, UNK
  9. SIMVASTATIN [Concomitant]
     Dosage: 40 MG, UNK
  10. TAMSULOSIN [Concomitant]
     Dosage: 0.4 MG, UNK
  11. TOPROL XL [Concomitant]
     Dosage: 25 MG, UNK
  12. WARFARIN [Concomitant]
     Dosage: 3 MG, UNK
  13. ZOFRAN [Concomitant]
     Dosage: 8 MG, UNK

REACTIONS (4)
  - Dizziness [Unknown]
  - Fatigue [Recovered/Resolved]
  - Muscular weakness [Recovered/Resolved]
  - Respiratory rate increased [Recovered/Resolved]
